FAERS Safety Report 7147931-X (Version None)
Quarter: 2010Q4

REPORT INFORMATION
  Report Type: 
  Country: None (occurrence: None)
  Receive Date: 20101209
  Receipt Date: 20101126
  Transmission Date: 20110411
  Serious: Yes (Hospitalization, Other)
  Sender: FDA-Public Use
  Company Number: FR-CELGENEUS-056-21880-08040823

PATIENT
  Sex: Male

DRUGS (12)
  1. REVLIMID [Suspect]
     Indication: MULTIPLE MYELOMA
     Route: 048
     Dates: start: 20071020
  2. REVLIMID [Suspect]
     Route: 048
     Dates: start: 20071117
  3. REVLIMID [Suspect]
     Route: 048
     Dates: start: 20071214, end: 20071219
  4. DEXAMETHASONE [Concomitant]
     Indication: MULTIPLE MYELOMA
     Route: 065
     Dates: start: 20071020
  5. DEXAMETHASONE [Concomitant]
     Route: 065
     Dates: start: 20071117
  6. CALCIDIA [Concomitant]
     Route: 065
  7. FUNGIZONE [Concomitant]
     Route: 065
  8. INIPOMP [Concomitant]
     Route: 065
  9. KEPPRA [Concomitant]
     Route: 065
  10. STILNOX [Concomitant]
     Route: 065
  11. ALKERAN [Concomitant]
     Indication: MULTIPLE MYELOMA
     Route: 065
     Dates: start: 20071020
  12. ALKERAN [Concomitant]
     Route: 065
     Dates: start: 20071117

REACTIONS (3)
  - ALVEOLITIS [None]
  - LUNG DISORDER [None]
  - PYREXIA [None]
